FAERS Safety Report 7544376-5 (Version None)
Quarter: 2011Q2

REPORT INFORMATION
  Report Type: 
  Country: None (occurrence: None)
  Receive Date: 20110613
  Receipt Date: 20080416
  Transmission Date: 20111010
  Serious: Yes (Hospitalization, Other)
  Sender: FDA-Public Use
  Company Number: PHFR2004GB00693

PATIENT
  Sex: Male

DRUGS (4)
  1. CLOZAPINE [Suspect]
     Route: 048
     Dates: start: 19940809
  2. METFORMIN HCL [Concomitant]
     Indication: DIABETES MELLITUS
  3. CLOZAPINE [Suspect]
     Indication: SCHIZOPHRENIA
     Dosage: 80MG/DAY
     Route: 048
     Dates: start: 20010701
  4. FERROUS SULFATE TAB [Concomitant]
     Route: 065

REACTIONS (12)
  - GASTROINTESTINAL HAEMORRHAGE [None]
  - RED BLOOD CELL SEDIMENTATION RATE INCREASED [None]
  - GASTRITIS [None]
  - HAEMOGLOBIN DECREASED [None]
  - NEUTROPHIL COUNT INCREASED [None]
  - PLATELET COUNT INCREASED [None]
  - WHITE BLOOD CELL COUNT INCREASED [None]
  - DIFFERENTIAL WHITE BLOOD CELL COUNT ABNORMAL [None]
  - THROMBOCYTOSIS [None]
  - SELF-INDUCED VOMITING [None]
  - OESOPHAGITIS [None]
  - MYELOPROLIFERATIVE DISORDER [None]
